FAERS Safety Report 20046373 (Version 1)
Quarter: 2021Q4

REPORT INFORMATION
  Report Type: Spontaneous
  Country: IT (occurrence: IT)
  Receive Date: 20211109
  Receipt Date: 20211109
  Transmission Date: 20220303
  Serious: Yes (Other)
  Sender: FDA-Public Use
  Company Number: IT-MINISAL02-802256

PATIENT
  Age: 72 Year
  Sex: Female
  Weight: 60 kg

DRUGS (4)
  1. GEMCITABINE [Suspect]
     Active Substance: GEMCITABINE
     Indication: Pancreatic neoplasm
     Dosage: 800 MILLIGRAM/SQ. METER, WEEKLY
     Route: 041
     Dates: start: 20210303, end: 20210811
  2. CISPLATIN [Suspect]
     Active Substance: CISPLATIN
     Indication: Pancreatic neoplasm
     Dosage: 30 MILLIGRAM/SQ. METER, WEEKLY
     Route: 041
     Dates: start: 20210303, end: 20210728
  3. CAPECITABINE [Suspect]
     Active Substance: CAPECITABINE
     Indication: Pancreatic neoplasm
     Dosage: 1250 MILLIGRAM/SQ. METER, DAILY
     Route: 048
     Dates: start: 20210303, end: 20210728
  4. ABRAXANE [Suspect]
     Active Substance: PACLITAXEL
     Indication: Pancreatic neoplasm
     Dosage: 150 MILLIGRAM/SQ. METER, WEEKLY
     Route: 041
     Dates: start: 20210303, end: 20210728

REACTIONS (1)
  - Neurotoxicity [Recovered/Resolved]

NARRATIVE: CASE EVENT DATE: 20210317
